FAERS Safety Report 6738353-1 (Version None)
Quarter: 2010Q2

REPORT INFORMATION
  Report Type: 
  Country: None (occurrence: None)
  Receive Date: 20100524
  Receipt Date: 20100513
  Transmission Date: 20101027
  Serious: Yes (Hospitalization, Other)
  Sender: FDA-Public Use
  Company Number: CA-JNJFOC-20100507078

PATIENT
  Sex: Female
  Weight: 80.5 kg

DRUGS (2)
  1. REMICADE [Suspect]
     Indication: COLITIS
     Route: 042
  2. IMURAN [Concomitant]

REACTIONS (2)
  - ASTHENIA [None]
  - FAECES DISCOLOURED [None]
